FAERS Safety Report 9350504 (Version 2)
Quarter: 2014Q1

REPORT INFORMATION
  Report Type: Spontaneous
  Country: US (occurrence: US)
  Receive Date: 20130617
  Receipt Date: 20140313
  Transmission Date: 20141002
  Serious: No
  Sender: FDA-Public Use
  Company Number: US-PFIZER INC-2013178483

PATIENT
  Age: 48 Year
  Sex: Female

DRUGS (3)
  1. RAPAMUNE [Suspect]
     Indication: LUNG TRANSPLANT
     Dosage: 7 MG, DAILY
     Dates: start: 20130311
  2. RAPAMUNE [Suspect]
     Dosage: 9 MG, DAILY (1 MG ORAL TABLET, TAKE 2 MG ORAL TABLET TAKE 4 TABS)
     Route: 048
  3. RAPAMUNE [Suspect]
     Dosage: 2 MG, UNK (TAKE 4 TABS FOR TOTAL OF 8 MG)

REACTIONS (2)
  - Off label use [Unknown]
  - Drug ineffective for unapproved indication [Unknown]
